FAERS Safety Report 18684900 (Version 1)
Quarter: 2020Q4

REPORT INFORMATION
  Report Type: Spontaneous
  Country: US (occurrence: US)
  Receive Date: 20201230
  Receipt Date: 20201230
  Transmission Date: 20210114
  Serious: No
  Sender: FDA-Public Use
  Company Number: US-TEVA-2020-US-1863478

PATIENT
  Age: 68 Year
  Sex: Female

DRUGS (2)
  1. ALPRAZOLAM TEVA [Suspect]
     Active Substance: ALPRAZOLAM
     Route: 060
  2. VALIUM [Concomitant]
     Active Substance: DIAZEPAM
     Dosage: 2 MG
     Route: 065

REACTIONS (2)
  - Therapeutic product effect variable [Unknown]
  - Product use issue [Unknown]
